FAERS Safety Report 12679879 (Version 1)
Quarter: 2016Q3

REPORT INFORMATION
  Report Type: Spontaneous
  Country: US (occurrence: None)
  Receive Date: 20160823
  Receipt Date: 20160823
  Transmission Date: 20161109
  Serious: Yes (Hospitalization)
  Sender: FDA-Public Use
  Company Number: None

PATIENT
  Age: 74 Year
  Sex: Female
  Weight: 64.41 kg

DRUGS (1)
  1. FARXIGA [Suspect]
     Active Substance: DAPAGLIFLOZIN PROPANEDIOL
     Indication: TYPE 2 DIABETES MELLITUS
     Route: 048
     Dates: start: 20160208, end: 20160808

REACTIONS (6)
  - Anaemia [None]
  - Hypothyroidism [None]
  - Haematuria [None]
  - Micturition urgency [None]
  - Hyperlipidaemia [None]
  - Bladder neoplasm [None]

NARRATIVE: CASE EVENT DATE: 20160801
